FAERS Safety Report 6775795-2 (Version None)
Quarter: 2010Q2

REPORT INFORMATION
  Report Type: 
  Country: None (occurrence: None)
  Receive Date: 20100617
  Receipt Date: 20100610
  Transmission Date: 20101027
  Serious: Yes (Hospitalization)
  Sender: FDA-Public Use
  Company Number: FR-ABBOTT-10P-056-0650347-00

PATIENT
  Sex: Male

DRUGS (14)
  1. LIPANTHYL [Suspect]
     Indication: DYSLIPIDAEMIA
     Route: 048
     Dates: start: 20090101, end: 20100413
  2. CITALOPRAM HYDROBROMIDE [Suspect]
     Indication: DEPRESSION
     Route: 048
     Dates: start: 20100410, end: 20100413
  3. PREVISCAN [Suspect]
     Indication: ATRIAL FIBRILLATION
     Route: 048
     Dates: start: 20090101, end: 20100413
  4. PERINDOPRIL [Suspect]
     Indication: HYPERTENSION
     Route: 048
     Dates: start: 20090101, end: 20100408
  5. GLUCOPHAGE [Suspect]
     Indication: TYPE 2 DIABETES MELLITUS
     Route: 048
     Dates: start: 20090101, end: 20100407
  6. TOPALGIC [Suspect]
     Indication: BACK PAIN
     Route: 048
     Dates: start: 20100407, end: 20100414
  7. MYSOLINE [Suspect]
     Indication: ESSENTIAL TREMOR
     Route: 048
     Dates: start: 20090101, end: 20100413
  8. THIOCOLCHICOSIDE [Suspect]
     Indication: BACK PAIN
     Route: 048
     Dates: start: 20100407, end: 20100414
  9. DAFALGAN CODEINE [Suspect]
     Indication: BACK PAIN
     Route: 048
     Dates: start: 20100409, end: 20100413
  10. LOXEN [Suspect]
     Indication: HYPERTENSION
     Route: 048
     Dates: start: 20100411, end: 20100413
  11. CREON [Concomitant]
     Indication: DRUG USE FOR UNKNOWN INDICATION
     Route: 048
     Dates: end: 20100414
  12. DOLIPRANE [Concomitant]
     Indication: DRUG USE FOR UNKNOWN INDICATION
     Dates: start: 20100407, end: 20100409
  13. KAYEXALATE [Concomitant]
     Indication: DRUG USE FOR UNKNOWN INDICATION
     Dates: start: 20100408, end: 20100409
  14. FORLAX [Concomitant]
     Indication: DRUG USE FOR UNKNOWN INDICATION
     Dates: start: 20100411, end: 20100417

REACTIONS (2)
  - CYTOLYTIC HEPATITIS [None]
  - TRANSAMINASES INCREASED [None]
